FAERS Safety Report 8964361 (Version 1)
Quarter: 2012Q4

REPORT INFORMATION
  Report Type: 
  Country: US (occurrence: US)
  Receive Date: 20121214
  Receipt Date: 20121214
  Transmission Date: 20130627
  Serious: Yes (Other)
  Sender: FDA-Public Use
  Company Number: US-GLAXOSMITHKLINE-A0976024A

PATIENT
  Age: 72 Year
  Sex: Male
  Weight: 101.4 kg

DRUGS (1)
  1. AVODART [Suspect]
     Indication: PRODUCT USED FOR UNKNOWN INDICATION
     Dosage: .5MG Unknown
     Route: 048
     Dates: start: 200308

REACTIONS (6)
  - Prostate cancer [Recovering/Resolving]
  - Proctalgia [Unknown]
  - Dysuria [Unknown]
  - Metastases to liver [Unknown]
  - Metastases to lymph nodes [Unknown]
  - Neoplasm prostate [Unknown]
